FAERS Safety Report 8409844-2 (Version None)
Quarter: 2012Q2

REPORT INFORMATION
  Report Type: 
  Country: None (occurrence: None)
  Receive Date: 20120528
  Receipt Date: 20120517
  Transmission Date: 20120825
  Serious: Yes (Other)
  Sender: FDA-Public Use
  Company Number: 2011MA002537

PATIENT
  Sex: Female

DRUGS (44)
  1. TRAMADOL HCL [Concomitant]
  2. AVANDA/METFORMIN [Concomitant]
  3. TRICOR [Concomitant]
  4. ZOLPIDEM [Concomitant]
  5. CLARINEX [Concomitant]
  6. OXYCODONE HCL [Concomitant]
  7. PREDNISONE TAB [Concomitant]
  8. ALLEGRA [Concomitant]
  9. AZITHROMYCIN [Concomitant]
  10. LEVAQUIN [Concomitant]
  11. ULTRAM [Concomitant]
  12. ACIPHEX [Concomitant]
  13. PROMETHAZINE [Concomitant]
  14. AMOXICILLIN [Concomitant]
  15. BACTRIM [Concomitant]
  16. LISINOPRIL [Concomitant]
  17. PHENERGAN [Concomitant]
  18. METOCLOPRAMIDE [Suspect]
     Indication: PRODUCT USED FOR UNKNOWN INDICATION
     Dosage: 10 MG;PO
     Route: 048
     Dates: start: 20031210, end: 20090807
  19. HYDROCODONE BITARTRATE + ACETAMINOPHEN [Concomitant]
  20. FLUZONE [Concomitant]
  21. CEFOPROZIL [Concomitant]
  22. DIPHENHYDRAMINE HCL [Concomitant]
  23. ZOLOFT [Concomitant]
  24. ASTELIN [Concomitant]
  25. AVANDIA [Concomitant]
  26. GLIPIZIDE [Concomitant]
  27. HYOMAX-SR [Concomitant]
  28. AMBIEN [Concomitant]
  29. ZOFRAN [Concomitant]
  30. NEXIUM [Concomitant]
  31. DICLOFENAC SODIUM [Concomitant]
  32. RANITIDINE [Concomitant]
  33. ONDANSETRON [Concomitant]
  34. HYOSCYAMINE [Concomitant]
  35. CELEBREX [Concomitant]
  36. BENZONATATE [Concomitant]
  37. MECLIZINE [Concomitant]
  38. GABAPENTIN [Concomitant]
  39. NAPROXEN [Concomitant]
  40. ETODOLAC [Concomitant]
  41. PROAIR HFA [Concomitant]
  42. CYCLOBENZAPRINE [Concomitant]
  43. LORATADINE [Concomitant]
  44. AUGMENTIN [Concomitant]

REACTIONS (9)
  - TREMOR [None]
  - TARDIVE DYSKINESIA [None]
  - ECONOMIC PROBLEM [None]
  - DYSKINESIA [None]
  - DYSTONIA [None]
  - EXTRAPYRAMIDAL DISORDER [None]
  - EMOTIONAL DISORDER [None]
  - AKATHISIA [None]
  - INCORRECT DRUG ADMINISTRATION DURATION [None]
